FAERS Safety Report 20416118 (Version 1)
Quarter: 2022Q1

REPORT INFORMATION
  Report Type: Spontaneous
  Country: US (occurrence: None)
  Receive Date: 20220130
  Receipt Date: 20220130
  Transmission Date: 20220423
  Serious: Yes (Other)
  Sender: FDA-Public Use
  Company Number: None

PATIENT
  Age: 35 Year
  Sex: Female
  Weight: 90.45 kg

DRUGS (3)
  1. SODIUM CITRATE [Suspect]
     Active Substance: SODIUM CITRATE
     Indication: Blood donor
     Dates: start: 20211211, end: 20220125
  2. PRILOSEC [Concomitant]
     Active Substance: OMEPRAZOLE MAGNESIUM
  3. NEXIUM [Concomitant]
     Active Substance: ESOMEPRAZOLE MAGNESIUM

REACTIONS (9)
  - Feeling hot [None]
  - Paraesthesia [None]
  - Dizziness [None]
  - Tunnel vision [None]
  - Nausea [None]
  - Loss of consciousness [None]
  - Seizure [None]
  - Dyspnoea [None]
  - Hyperhidrosis [None]

NARRATIVE: CASE EVENT DATE: 20220125
